FAERS Safety Report 23187199 (Version 2)
Quarter: 2023Q4

REPORT INFORMATION
  Report Type: Report from Study
  Country: US (occurrence: US)
  Receive Date: 20231115
  Receipt Date: 20231211
  Transmission Date: 20240110
  Serious: Yes (Other)
  Sender: FDA-Public Use
  Company Number: US-AUROBINDO-AUR-APL-2023-068517

PATIENT
  Age: 9 Year
  Sex: Male

DRUGS (17)
  1. ARIPIPRAZOLE [Suspect]
     Active Substance: ARIPIPRAZOLE
     Indication: Disruptive mood dysregulation disorder
     Dosage: 2.5 MILLIGRAM EVERY EVENING
     Route: 065
  2. ARIPIPRAZOLE [Suspect]
     Active Substance: ARIPIPRAZOLE
     Indication: Major depression
     Dosage: 5 MILLIGRAM, TWO TIMES A DAY
     Route: 065
  3. ARIPIPRAZOLE [Suspect]
     Active Substance: ARIPIPRAZOLE
     Indication: Attention deficit hyperactivity disorder
     Dosage: 20 MILLIGRAM, DAILY (UP-TITRATED)
     Route: 065
  4. ATOMOXETINE [Suspect]
     Active Substance: ATOMOXETINE
     Indication: Disruptive mood dysregulation disorder
     Dosage: 40 MILLIGRAM, ONCE A DAY (EVERY MORNING)
     Route: 065
  5. ATOMOXETINE [Suspect]
     Active Substance: ATOMOXETINE
     Indication: Major depression
     Dosage: 60 MILLIGRAM
     Route: 065
  6. ATOMOXETINE [Suspect]
     Active Substance: ATOMOXETINE
     Indication: Attention deficit hyperactivity disorder
  7. LAMOTRIGINE [Suspect]
     Active Substance: LAMOTRIGINE
     Indication: Disruptive mood dysregulation disorder
     Dosage: UNK
     Route: 065
  8. LAMOTRIGINE [Suspect]
     Active Substance: LAMOTRIGINE
     Indication: Major depression
  9. LAMOTRIGINE [Suspect]
     Active Substance: LAMOTRIGINE
     Indication: Attention deficit hyperactivity disorder
  10. RISPERIDONE [Suspect]
     Active Substance: RISPERIDONE
     Indication: Disruptive mood dysregulation disorder
     Dosage: 0.25 MILLIGRAM EVERY EVENING
     Route: 065
  11. RISPERIDONE [Suspect]
     Active Substance: RISPERIDONE
     Indication: Major depression
  12. RISPERIDONE [Suspect]
     Active Substance: RISPERIDONE
     Indication: Attention deficit hyperactivity disorder
  13. DIVALPROEX SODIUM [Suspect]
     Active Substance: DIVALPROEX SODIUM
     Indication: Product used for unknown indication
     Dosage: 125 MILLIGRAM (EVERY MORNING AND EVERY AFTERNOON)
     Route: 065
  14. CITALOPRAM [Concomitant]
     Active Substance: CITALOPRAM HYDROBROMIDE
     Indication: Product used for unknown indication
     Dosage: 5 MILLIGRAM, ONCE A DAY (EVERY MORNING)
     Route: 065
  15. CITALOPRAM [Concomitant]
     Active Substance: CITALOPRAM HYDROBROMIDE
     Dosage: 20 MILLIGRAM
     Route: 065
  16. GUANFACINE [Concomitant]
     Active Substance: GUANFACINE
     Indication: Product used for unknown indication
     Dosage: 3 MILLIGRAM EVERY EVENING (EXTENDED-RELEASE)
     Route: 065
  17. MELATONIN [Concomitant]
     Active Substance: MELATONIN
     Indication: Product used for unknown indication
     Dosage: 5 MILLIGRAM (EVERY EVENING)
     Route: 065

REACTIONS (2)
  - Drug ineffective [Unknown]
  - Blood triglycerides increased [Unknown]
